FAERS Safety Report 8565555 (Version 11)
Quarter: 2014Q1

REPORT INFORMATION
  Report Type: Report from Study
  Country: NL (occurrence: NL)
  Receive Date: 20120516
  Receipt Date: 20140310
  Transmission Date: 20141002
  Serious: Yes (Life-Threatening, Hospitalization)
  Sender: FDA-Public Use
  Company Number: NL-B.I. PHARMACEUTICALS,INC./RIDGEFIELD-2012-RD-00231EU

PATIENT
  Age: 71 Year
  Sex: Female
  Weight: 53.8 kg

DRUGS (18)
  1. BI 1356 [Suspect]
     Indication: TYPE 2 DIABETES MELLITUS
     Dosage: 5 MG
     Route: 065
     Dates: start: 20111027, end: 20120508
  2. TRIAL PROCEDURE [Suspect]
     Indication: TYPE 2 DIABETES MELLITUS
     Route: 065
  3. METFORMIN [Suspect]
     Indication: TYPE 2 DIABETES MELLITUS
     Dosage: 2000 MG
     Route: 048
     Dates: start: 20061002, end: 20120410
  4. METFORMIN [Suspect]
     Indication: TYPE 2 DIABETES MELLITUS
     Dosage: 1000 MG
     Route: 048
     Dates: start: 20120410, end: 20120502
  5. NEXIUM [Concomitant]
     Indication: GASTRITIS
     Dosage: 20 MG
     Route: 048
     Dates: start: 20111229, end: 20120502
  6. ASCAL [Concomitant]
     Indication: ATHEROSCLEROSIS PROPHYLAXIS
     Route: 065
  7. PERINDOPRIL [Concomitant]
     Indication: HYPERTENSION
     Route: 065
  8. ATORVASTATIN [Concomitant]
     Indication: ATHEROSCLEROSIS PROPHYLAXIS
     Route: 065
  9. CHLOORAMPENICOL [Concomitant]
     Indication: MACULAR OEDEMA
     Route: 065
  10. RANIBIZUMAB [Concomitant]
     Indication: MACULAR OEDEMA
     Route: 065
  11. INDAPAMIDE [Concomitant]
     Indication: HYPERTENSION
     Route: 065
     Dates: start: 20120213
  12. NACL 0.9 % [Concomitant]
     Indication: HYPERGLYCAEMIA
     Route: 065
     Dates: start: 20120508, end: 20120510
  13. LAPAROSCOPIC NEFRECTOMY LEFT [Concomitant]
     Indication: RENAL CELL CARCINOMA
     Route: 065
     Dates: start: 20120828, end: 20120828
  14. ACTOS [Concomitant]
     Indication: TYPE 2 DIABETES MELLITUS
     Dosage: 45 MG
     Route: 048
     Dates: start: 20120217, end: 20120508
  15. LEVEMIR [Concomitant]
     Indication: TYPE 2 DIABETES MELLITUS
     Dosage: 32 MU
     Route: 058
     Dates: start: 20120509, end: 20120607
  16. LEVEMIR [Concomitant]
     Indication: TYPE 2 DIABETES MELLITUS
     Dosage: 28 MU
     Route: 058
     Dates: start: 20120607
  17. NOVORAPID [Concomitant]
     Dosage: 32 MU
     Route: 058
     Dates: start: 20120508, end: 20120704
  18. NOVORAPID [Concomitant]
     Indication: TYPE 2 DIABETES MELLITUS
     Dosage: 38 MU
     Route: 058
     Dates: start: 20120704

REACTIONS (3)
  - Renal cell carcinoma [Recovered/Resolved]
  - Hyperglycaemia [Recovered/Resolved]
  - Colitis microscopic [Not Recovered/Not Resolved]
